FAERS Safety Report 13367445 (Version 1)
Quarter: 2017Q1

REPORT INFORMATION
  Report Type: Spontaneous
  Country: US (occurrence: US)
  Receive Date: 20170323
  Receipt Date: 20170323
  Transmission Date: 20170429
  Serious: Yes (Other)
  Sender: FDA-Public Use
  Company Number: None

PATIENT
  Age: 75 Year
  Sex: Male
  Weight: 82.9 kg

DRUGS (1)
  1. PACLITAXEL. [Suspect]
     Active Substance: PACLITAXEL
     Indication: LUNG NEOPLASM MALIGNANT
     Dates: start: 20170321, end: 20170321

REACTIONS (4)
  - Dyspnoea [None]
  - Product quality issue [None]
  - Anxiety [None]
  - Hypertension [None]

NARRATIVE: CASE EVENT DATE: 20170321
